FAERS Safety Report 12652630 (Version 1)
Quarter: 2016Q3

REPORT INFORMATION
  Report Type: Other
  Country: US (occurrence: US)
  Receive Date: 20160815
  Receipt Date: 20160815
  Transmission Date: 20161109
  Serious: Yes (Life-Threatening, Hospitalization, Other)
  Sender: FDA-Public Use
  Company Number: US-BION-20160346

PATIENT
  Age: 20 Year
  Sex: Male

DRUGS (1)
  1. LOPRAMIDE HCL CAPSULES [Suspect]
     Active Substance: LOPERAMIDE HYDROCHLORIDE
     Indication: DRUG WITHDRAWAL SYNDROME
     Dosage: 288 MG (144 PILLS) EACH MORNING
     Route: 048

REACTIONS (12)
  - Ventricular fibrillation [Recovered/Resolved]
  - Electrocardiogram QRS complex prolonged [Recovered/Resolved]
  - Congestive cardiomyopathy [Recovered/Resolved]
  - Drug abuse [Recovered/Resolved]
  - Arrhythmia [Recovered/Resolved]
  - Ventricular arrhythmia [Recovered/Resolved]
  - Syncope [None]
  - Medical device site infection [None]
  - Ventricular extrasystoles [Recovered/Resolved]
  - Electrocardiogram QT prolonged [Recovered/Resolved]
  - Drug level above therapeutic [None]
  - Torsade de pointes [Recovered/Resolved]
